FAERS Safety Report 17940215 (Version 2)
Quarter: 2022Q3

REPORT INFORMATION
  Report Type: Spontaneous
  Country: US (occurrence: US)
  Receive Date: 20200625
  Receipt Date: 20220726
  Transmission Date: 20221027
  Serious: Yes (Death, Other)
  Sender: FDA-Public Use
  Company Number: US-SAARTEMIS-SAC202006170289

PATIENT
  Age: 57 Year
  Sex: Female

DRUGS (1)
  1. ZANTAC [Suspect]
     Active Substance: RANITIDINE HYDROCHLORIDE
     Indication: Gastrooesophageal reflux disease
     Dosage: 150 MG, QD
     Route: 065
     Dates: start: 200001, end: 201603

REACTIONS (3)
  - Lung carcinoma cell type unspecified stage I [Fatal]
  - Bladder cancer [Fatal]
  - Gastric cancer stage IV [Fatal]

NARRATIVE: CASE EVENT DATE: 20071001
